FAERS Safety Report 7301518-4 (Version None)
Quarter: 2011Q1

REPORT INFORMATION
  Report Type: 
  Country: None (occurrence: None)
  Receive Date: 20110218
  Receipt Date: 20100920
  Transmission Date: 20110831
  Serious: No
  Sender: FDA-Public Use
  Company Number: US-BRISTOL-MYERS SQUIBB COMPANY-15296627

PATIENT
  Age: 24 Year
  Sex: Female
  Weight: 61 kg

DRUGS (6)
  1. WELLBUTRIN XL [Concomitant]
     Dosage: TABS
  2. KENALOG [Suspect]
     Route: 030
     Dates: start: 20090623
  3. YAZ [Concomitant]
     Dosage: YAZ 28 3 MG-2OMCG(24)TAB
  4. CYPROHEPTADINE HCL [Concomitant]
  5. SALEX [Concomitant]
     Dosage: 1 DF =  SALEX 6% SHAMPOO (3-5 TIMES WEEKLY)
  6. ADDERALL 10 [Concomitant]
     Dosage: ADDERALL 20MG TABS TAKEN UP TO 40MG

REACTIONS (2)
  - INJECTION SITE ATROPHY [None]
  - SKIN HYPOPIGMENTATION [None]
